FAERS Safety Report 4348219-2 (Version None)
Quarter: 2004Q1

REPORT INFORMATION
  Report Type: 
  Country: None (occurrence: None)
  Receive Date: 20040325
  Receipt Date: 20031209
  Transmission Date: 20041129
  Serious: No
  Sender: FDA-Public Use
  Company Number: USA031049830

PATIENT
  Age: 77 Year
  Sex: Female
  Weight: 49 kg

DRUGS (10)
  1. FORTEO [Suspect]
     Indication: OSTEOPOROSIS
     Dosage: 20 UG/DAY
     Dates: start: 20031003
  2. LIPITOR [Concomitant]
  3. QUININE SULFATE [Concomitant]
  4. ALBUTEROL [Concomitant]
  5. ADVAIR DISKUS 100/50 [Concomitant]
  6. RHINOCORT [Concomitant]
  7. DIAZEPAM [Concomitant]
  8. ATENOLOL [Concomitant]
  9. ALLERGY SHOT [Concomitant]
  10. CARDURA [Concomitant]

REACTIONS (5)
  - CONSTIPATION [None]
  - FACIAL PAIN [None]
  - INJECTION SITE DISCOLOURATION [None]
  - INJECTION SITE HAEMORRHAGE [None]
  - TRIGEMINAL NEURALGIA [None]
